FAERS Safety Report 11156435 (Version 1)
Quarter: 2015Q2

REPORT INFORMATION
  Report Type: Spontaneous
  Country: US (occurrence: US)
  Receive Date: 20150602
  Receipt Date: 20150602
  Transmission Date: 20150821
  Serious: Yes (Other)
  Sender: FDA-Public Use
  Company Number: US-ELI_LILLY_AND_COMPANY-US201505009921

PATIENT
  Age: 59 Year
  Sex: Female

DRUGS (2)
  1. LANTUS [Concomitant]
     Active Substance: INSULIN GLARGINE
  2. HUMALOG [Suspect]
     Active Substance: INSULIN LISPRO
     Indication: TYPE 1 DIABETES MELLITUS
     Dosage: 20 U, QD
     Route: 065
     Dates: start: 2010

REACTIONS (6)
  - Blood glucose increased [Unknown]
  - Injection site pain [Unknown]
  - Asthenia [Unknown]
  - Decreased appetite [Unknown]
  - Blood glucose increased [Unknown]
  - Disturbance in attention [Unknown]

NARRATIVE: CASE EVENT DATE: 201501
